FAERS Safety Report 5909684-X (Version None)
Quarter: 2008Q4

REPORT INFORMATION
  Report Type: 
  Country: None (occurrence: None)
  Receive Date: 20081007
  Receipt Date: 20080926
  Transmission Date: 20090506
  Serious: Yes (Hospitalization)
  Sender: FDA-Public Use
  Company Number: GB-RANBAXY-2008RR-18130

PATIENT
  Age: 78 Year
  Sex: Male

DRUGS (29)
  1. FUROSEMIDE TABLETS BP 40MG [Suspect]
     Indication: RENAL FAILURE
     Dosage: UNK
     Dates: start: 20080810, end: 20080813
  2. ALLOPURINOL [Concomitant]
     Dosage: 100 MG, QD
     Route: 048
  3. ASPIRIN [Concomitant]
     Dosage: 75 MG, QD
     Route: 048
  4. ATENOLOL [Concomitant]
     Dosage: 100 MG, QD
     Route: 048
  5. AUGMENTIN '125' [Concomitant]
     Dosage: 1.2 G, TID
     Route: 042
     Dates: start: 20080820
  6. BUMETANIDE [Concomitant]
     Dosage: 1 MG, QD
     Dates: start: 20080817
  7. CALAMINE [Concomitant]
     Dosage: 1 DF, QID
     Route: 061
     Dates: start: 20080826
  8. CALCIUM GLUCONATE [Concomitant]
     Dosage: 10 ML, UNK
     Route: 042
     Dates: start: 20080810, end: 20080810
  9. CALCIUM RESONIUM [Concomitant]
     Dosage: 30 MG, QD
     Route: 048
  10. CANDESARTAN [Concomitant]
     Dosage: 4 MG, QD
     Route: 048
  11. CHLORPHENIRAMINE MALEATE [Concomitant]
     Dosage: 4 MG, TID
     Dates: start: 20080820
  12. CLARITHROMYCIN [Concomitant]
     Dosage: 500 MG, BID
     Dates: start: 20080825
  13. CLOPIDOGREL [Concomitant]
     Dosage: 75 MG, QD
     Dates: start: 20080811
  14. DIAZEPAM [Concomitant]
     Dosage: 5 MG, UNK
     Route: 048
     Dates: start: 20080810
  15. DIGOXIN [Concomitant]
     Dosage: 125 UG, QD
     Dates: start: 20080816
  16. DIGOXIN [Concomitant]
     Dosage: 250 UG, QD
     Dates: start: 20080826
  17. E45 ITCH RELIEF [Concomitant]
     Indication: RASH
     Dosage: UNK
     Dates: start: 20080813
  18. ENOXAPARIN SODIUM [Concomitant]
     Dosage: 80 MG, UNK
     Route: 058
     Dates: start: 20080810
  19. NITROGLYCERIN [Concomitant]
     Dosage: UNK
     Dates: start: 20080818
  20. LEVOTHYROXINE SODIUM [Concomitant]
     Dosage: 25 UG, QD
     Route: 048
  21. LORAZEPAM [Concomitant]
     Dosage: UNK
     Dates: start: 20080812
  22. METOCLOPRAMIDE [Concomitant]
     Dosage: 10 MG, TID
  23. OMEPRAZOLE [Concomitant]
     Dosage: 40 MG, QD
     Route: 048
  24. ACETAMINOPHEN [Concomitant]
     Dosage: UNK
     Route: 048
  25. PREDNISOLONE [Concomitant]
     Dosage: 30 MG, QD
  26. RAMIPRIL [Concomitant]
     Dosage: 1.25 MG, QD
     Dates: start: 20080818
  27. SALBUTAMOL [Concomitant]
     Dosage: 5 MG, QID
     Route: 055
  28. SENNA [Concomitant]
     Dosage: 15 MG, QD
     Route: 048
     Dates: start: 20080811
  29. SIMVASTATIN [Concomitant]
     Dosage: 40 MG, UNK
     Route: 048

REACTIONS (3)
  - BLISTER [None]
  - CONFUSIONAL STATE [None]
  - ERYTHEMA MULTIFORME [None]
